FAERS Safety Report 5293329-9 (Version None)
Quarter: 2007Q1

REPORT INFORMATION
  Report Type: 
  Country: None (occurrence: None)
  Receive Date: 20070116
  Receipt Date: 20060410
  Transmission Date: 20070707
  Serious: Yes (Other)
  Sender: FDA-Public Use
  Company Number: HQWYE829804AUG04

PATIENT
  Age: 53 Year
  Sex: Female
  Weight: 68.1 kg

DRUGS (6)
  1. PREMPRO [Suspect]
     Indication: HORMONE REPLACEMENT THERAPY
     Dosage: 0.625 MG/2.5MG, ORAL
     Route: 048
     Dates: start: 20001201, end: 20021201
  2. PREMPRO [Suspect]
     Indication: HOT FLUSH
     Dosage: 0.625 MG/2.5MG, ORAL
     Route: 048
     Dates: start: 20001201, end: 20021201
  3. ESTRADIOL [Suspect]
     Indication: DRUG USE FOR UNKNOWN INDICATION
     Dosage: UNK; ORAL
     Route: 048
     Dates: start: 19990301, end: 20000101
  4. NORETHINDRONE (NORETHISTERONE, ) [Suspect]
     Indication: DRUG USE FOR UNKNOWN INDICATION
     Dosage: 5 MG;
     Dates: start: 19990901
  5. PREMARIN [Suspect]
     Indication: DRUG USE FOR UNKNOWN INDICATION
     Dosage: 0.625MG, ORAL
     Route: 048
     Dates: start: 20001101, end: 20030301
  6. PROMETRIUM [Suspect]
     Indication: DRUG USE FOR UNKNOWN INDICATION
     Dosage: 100MG
     Dates: start: 19990301, end: 20030101

REACTIONS (1)
  - BREAST CANCER [None]
